FAERS Safety Report 8947462 (Version 2)
Quarter: 2013Q1

REPORT INFORMATION
  Report Type: Spontaneous
  Country: US (occurrence: US)
  Receive Date: 20121204
  Receipt Date: 20130104
  Transmission Date: 20140127
  Serious: No
  Sender: FDA-Public Use
  Company Number: US-009507513-1212USA001194

PATIENT
  Age: 61 Year
  Sex: Female
  Weight: 63.49 kg

DRUGS (3)
  1. CLARITIN-D 12 HOUR [Suspect]
     Indication: NASAL CONGESTION
     Dosage: 10 MG, ONCE
     Route: 048
     Dates: start: 20121202
  2. CLARITIN-D 12 HOUR [Suspect]
     Indication: SNEEZING
  3. ACTONEL [Concomitant]
     Indication: OSTEOPOROSIS
     Dosage: UNK, UNKNOWN

REACTIONS (5)
  - Dyspnoea [Recovered/Resolved]
  - Dizziness [Recovered/Resolved]
  - Tremor [Recovered/Resolved]
  - Hyperhidrosis [Recovered/Resolved]
  - Vision blurred [Recovered/Resolved]
